FAERS Safety Report 5674925-3 (Version None)
Quarter: 2008Q1

REPORT INFORMATION
  Report Type: 
  Country: None (occurrence: None)
  Receive Date: 20080320
  Receipt Date: 20080313
  Transmission Date: 20080703
  Serious: Yes (Other)
  Sender: FDA-Public Use
  Company Number: US-ELI_LILLY_AND_COMPANY-US200712005028

PATIENT
  Sex: Female
  Weight: 75.283 kg

DRUGS (10)
  1. BYETTA [Suspect]
     Dosage: 5 UG, UNKNOWN
     Route: 058
     Dates: start: 20071102, end: 20071220
  2. TOPROL-XL [Concomitant]
     Indication: HYPERTENSION
     Dosage: 200 MG, DAILY (1/D)
     Route: 048
  3. CLONIDINE [Concomitant]
     Indication: HYPERTENSION
     Dosage: 0.3 MG, DAILY (1/D)
     Route: 048
  4. NORVASC [Concomitant]
     Indication: HYPERTENSION
     Dosage: 5 MG, DAILY (1/D)
     Route: 048
  5. PAXIL [Concomitant]
     Indication: DEPRESSION
     Dosage: 20 MG, DAILY (1/D)
  6. CRESTOR [Concomitant]
     Indication: LIPIDS INCREASED
     Dosage: 10 MG, DAILY (1/D)
     Route: 065
  7. GLYBURIDE [Concomitant]
     Dosage: 5 MG, DAILY (1/D)
  8. LANTUS [Concomitant]
     Dosage: 8 U, DAILY (1/D)
     Route: 065
  9. ASPIRIN [Concomitant]
     Dosage: 81 MG, DAILY (1/D)
     Route: 065
  10. SKELAXIN [Concomitant]
     Dosage: 800 MG, UNKNOWN
     Route: 048

REACTIONS (1)
  - PANCREATITIS [None]
